FAERS Safety Report 4366735-4 (Version None)
Quarter: 2004Q2

REPORT INFORMATION
  Report Type: 
  Country: None (occurrence: None)
  Receive Date: 20040527
  Receipt Date: 20040503
  Transmission Date: 20050107
  Serious: Yes (Life-Threatening, Hospitalization, Other)
  Sender: FDA-Public Use
  Company Number: US-MERCK-0405USA00099

PATIENT
  Age: 28 Year
  Sex: Female
  Weight: 82 kg

DRUGS (7)
  1. CANCIDAS [Suspect]
     Indication: PYREXIA
     Route: 041
     Dates: start: 20040421, end: 20040421
  2. CANCIDAS [Suspect]
     Route: 042
     Dates: start: 20040422, end: 20040429
  3. CANCIDAS [Suspect]
     Indication: ACUTE MYELOID LEUKAEMIA
     Route: 041
     Dates: start: 20040421, end: 20040421
  4. CANCIDAS [Suspect]
     Route: 042
     Dates: start: 20040422, end: 20040429
  5. CILASTATIN SODIUM AND IMIPENEM [Concomitant]
     Route: 065
  6. CIPROFLOXACIN [Concomitant]
     Route: 065
  7. VANCOMYCIN [Concomitant]
     Route: 065

REACTIONS (4)
  - DRUG INEFFECTIVE [None]
  - FUNGAEMIA [None]
  - OESOPHAGEAL CANDIDIASIS [None]
  - PYREXIA [None]
